FAERS Safety Report 9909738 (Version 3)
Quarter: 2014Q2

REPORT INFORMATION
  Report Type: Spontaneous
  Country: US (occurrence: US)
  Receive Date: 20140219
  Receipt Date: 20140422
  Transmission Date: 20141212
  Serious: No
  Sender: FDA-Public Use
  Company Number: US-PFIZER INC-2014046832

PATIENT
  Age: 58 Year
  Sex: Female

DRUGS (2)
  1. NEURONTIN [Suspect]
     Dosage: UNK
  2. ROPINIROLE HYDROCHLORIDE [Suspect]
     Dosage: UNK

REACTIONS (1)
  - Drug hypersensitivity [Unknown]
